FAERS Safety Report 13807840 (Version 1)
Quarter: 2017Q3

REPORT INFORMATION
  Report Type: Spontaneous
  Country: ES (occurrence: ES)
  Receive Date: 20170728
  Receipt Date: 20170728
  Transmission Date: 20171127
  Serious: Yes (Hospitalization)
  Sender: FDA-Public Use
  Company Number: ES-COVIS PHARMA S.A.R.L.-2017COV00097

PATIENT
  Age: 53 Year
  Sex: Female

DRUGS (1)
  1. DIGOXIN. [Suspect]
     Active Substance: DIGOXIN
     Dosage: 30 MG, ONCE
     Route: 065

REACTIONS (5)
  - Intentional overdose [Recovered/Resolved]
  - Road traffic accident [Recovered/Resolved]
  - Rib fracture [Unknown]
  - Toxicity to various agents [Recovering/Resolving]
  - Multiple injuries [Unknown]
